FAERS Safety Report 23758448 (Version 1)
Quarter: 2024Q2

REPORT INFORMATION
  Report Type: Spontaneous
  Country: CA (occurrence: CA)
  Receive Date: 20240418
  Receipt Date: 20240418
  Transmission Date: 20240715
  Serious: Yes (Other)
  Sender: FDA-Public Use
  Company Number: CA-TEVA-VS-3181986

PATIENT
  Age: 96 Year
  Sex: Female
  Weight: 63 kg

DRUGS (1)
  1. RABEPRAZOLE [Suspect]
     Active Substance: RABEPRAZOLE
     Indication: Gastrooesophageal reflux disease
     Dosage: DOSE FORM: NOT SPECIFIED
     Route: 048

REACTIONS (1)
  - Dyspepsia [Recovered/Resolved]
